FAERS Safety Report 8822570 (Version 1)
Quarter: 2012Q4

REPORT INFORMATION
  Report Type: 
  Country: US (occurrence: US)
  Receive Date: 20121003
  Receipt Date: 20121003
  Transmission Date: 20130627
  Serious: Yes (Other)
  Sender: FDA-Public Use
  Company Number: US-AMGEN-USASP2012061543

PATIENT
  Age: 21 Year
  Sex: Female

DRUGS (12)
  1. NEUPOGEN [Suspect]
     Indication: CHEMOTHERAPY
     Dosage: 10 mug/kg, UNK
     Route: 058
  2. RITUXIMAB [Concomitant]
     Indication: DIFFUSE LARGE B-CELL LYMPHOMA
     Dosage: UNK
  3. RITUXIMAB [Concomitant]
     Indication: HODGKIN^S DISEASE
  4. ETOPOSIDE [Concomitant]
     Indication: DIFFUSE LARGE B-CELL LYMPHOMA
     Dosage: UNK
  5. ETOPOSIDE [Concomitant]
     Indication: HODGKIN^S DISEASE
  6. PREDNISONE [Concomitant]
     Indication: DIFFUSE LARGE B-CELL LYMPHOMA
     Dosage: UNK
  7. VINCRISTINE [Concomitant]
     Indication: DIFFUSE LARGE B-CELL LYMPHOMA
     Dosage: UNK
  8. CYCLOPHOSPHAMIDE [Concomitant]
     Indication: DIFFUSE LARGE B-CELL LYMPHOMA
     Dosage: UNK
  9. DOXORUBICIN [Concomitant]
     Indication: DIFFUSE LARGE B-CELL LYMPHOMA
     Dosage: UNK
  10. DEXAMETHASONE [Concomitant]
     Indication: HODGKIN^S DISEASE
     Dosage: UNK
  11. IFOSFAMIDE [Concomitant]
     Indication: HODGKIN^S DISEASE
     Dosage: UNK
  12. CISPLATIN [Concomitant]
     Indication: HODGKIN^S DISEASE
     Dosage: UNK

REACTIONS (13)
  - Posterior reversible encephalopathy syndrome [Recovered/Resolved]
  - Hypoaesthesia [Recovered/Resolved]
  - Anxiety [Recovered/Resolved]
  - Hemianopia homonymous [Recovered/Resolved]
  - Agitation [Recovered/Resolved]
  - Headache [Recovered/Resolved]
  - Vision blurred [Recovered/Resolved]
  - Nausea [Recovered/Resolved]
  - Vomiting [Recovered/Resolved]
  - Leukocytosis [Unknown]
  - Confusional state [Recovered/Resolved]
  - Loss of consciousness [Recovered/Resolved]
  - Monoparesis [Recovered/Resolved]
